FAERS Safety Report 5023323-4 (Version None)
Quarter: 2006Q2

REPORT INFORMATION
  Report Type: 
  Country: None (occurrence: None)
  Receive Date: 20060612
  Receipt Date: 20060530
  Transmission Date: 20061013
  Serious: Yes (Other)
  Sender: FDA-Public Use
  Company Number: PHBS2006CH08129

PATIENT
  Age: 36 Year
  Sex: Male

DRUGS (10)
  1. CYCLOSPORINE [Suspect]
     Indication: RENAL TRANSPLANT
  2. SIMULECT [Suspect]
     Indication: RENAL TRANSPLANT
     Dosage: 20 MG, ONCE/SINGLE
     Route: 065
  3. SIMULECT [Suspect]
     Dosage: 20 MG, ONCE/SINGLE
     Route: 065
  4. MYCOPHENOLATE MOFETIL [Suspect]
     Indication: RENAL TRANSPLANT
     Dosage: 1 G, BID
  5. METHYLPREDNISOLONE [Concomitant]
     Indication: TRANSPLANT REJECTION
     Dosage: 0.5 G/D
  6. METHYLPREDNISOLONE [Concomitant]
     Dosage: 0.5 G/D
  7. METHYLPREDNISOLONE [Concomitant]
     Dosage: 0.5 G/D
  8. PREDNISONE (NGX) [Suspect]
     Indication: RENAL TRANSPLANT
     Dosage: 25 MG TAPERED TO 7.5 MG/D
  9. TACROLIMUS [Suspect]
     Indication: RENAL TRANSPLANT
  10. AZATHIOPRINE [Concomitant]
     Indication: RENAL TRANSPLANT

REACTIONS (4)
  - HERPES VIRUS INFECTION [None]
  - KAPOSI'S SARCOMA [None]
  - SKIN LESION [None]
  - TRANSPLANT REJECTION [None]
